FAERS Safety Report 8965598 (Version 1)
Quarter: 2012Q4

REPORT INFORMATION
  Report Type: Spontaneous
  Country: US (occurrence: None)
  Receive Date: 20121212
  Receipt Date: 20121212
  Transmission Date: 20130627
  Serious: Yes (Other)
  Sender: FDA-Public Use
  Company Number: None

PATIENT
  Age: 27 Year
  Sex: Male
  Weight: 68.49 kg

DRUGS (3)
  1. BUDEPRION [Suspect]
     Indication: ADHD, PREDOMINANTLY INATTENTIVE TYPE
     Route: 048
     Dates: start: 20121030, end: 20121118
  2. WELBUTRIN XL [Concomitant]
  3. GENERIC BUPROPION SR [Concomitant]

REACTIONS (4)
  - Abdominal discomfort [None]
  - Product substitution issue [None]
  - Pain [None]
  - No therapeutic response [None]
